FAERS Safety Report 13648490 (Version 1)
Quarter: 2017Q2

REPORT INFORMATION
  Report Type: Spontaneous
  Country: CM (occurrence: CM)
  Receive Date: 20170613
  Receipt Date: 20170613
  Transmission Date: 20170830
  Serious: Yes (Hospitalization, Other)
  Sender: FDA-Public Use
  Company Number: CM-PFIZER INC-2017240838

PATIENT
  Age: 47 Year
  Sex: Male

DRUGS (2)
  1. MEDROL [Suspect]
     Active Substance: METHYLPREDNISOLONE
     Indication: DYSPHONIA
     Dosage: 16 MG, UNK
     Route: 048
     Dates: start: 20170522, end: 20170528
  2. AUGMENTIN [Concomitant]
     Active Substance: AMOXICILLIN\CLAVULANATE POTASSIUM

REACTIONS (2)
  - Malaria [Recovered/Resolved]
  - Myalgia [Recovered/Resolved]
